FAERS Safety Report 15565831 (Version 1)
Quarter: 2018Q4

REPORT INFORMATION
  Report Type: Report from Study
  Country: CA (occurrence: CA)
  Receive Date: 20181030
  Receipt Date: 20181030
  Transmission Date: 20190205
  Serious: Yes (Hospitalization)
  Sender: FDA-Public Use
  Company Number: CA-PFIZER INC-2018441398

PATIENT
  Age: 64 Year
  Sex: Male

DRUGS (10)
  1. CODEINE [Suspect]
     Active Substance: CODEINE
     Dosage: UNK
     Route: 065
  2. SANDOSTATIN [Suspect]
     Active Substance: OCTREOTIDE ACETATE
     Dosage: UNK
     Route: 065
  3. MORPHINE SULFATE. [Suspect]
     Active Substance: MORPHINE SULFATE
     Dosage: UNK
     Route: 065
  4. SANDOSTATIN [Suspect]
     Active Substance: OCTREOTIDE ACETATE
     Dosage: 40 MG, MONTHLY
     Route: 030
  5. SANDOSTATIN [Suspect]
     Active Substance: OCTREOTIDE ACETATE
     Dosage: 30 MG, MONTHLY
     Route: 030
  6. SANDOSTATIN [Suspect]
     Active Substance: OCTREOTIDE ACETATE
     Dosage: 20 MG, MONTHLY
     Route: 030
  7. SANDOSTATIN [Suspect]
     Active Substance: OCTREOTIDE ACETATE
     Dosage: UNK, 3X/DAY
     Route: 058
  8. SANDOSTATIN [Suspect]
     Active Substance: OCTREOTIDE ACETATE
     Indication: SHORT-BOWEL SYNDROME
     Dosage: 40 MG, MONTHLY
     Route: 030
  9. SANDOSTATIN [Suspect]
     Active Substance: OCTREOTIDE ACETATE
     Dosage: 40 MG, MONTHLY
     Route: 030
  10. SANDOSTATIN [Suspect]
     Active Substance: OCTREOTIDE ACETATE
     Dosage: 40 MG, MONTHLY
     Route: 030

REACTIONS (18)
  - Cortisol decreased [Recovering/Resolving]
  - Drug hypersensitivity [Recovering/Resolving]
  - Gastrointestinal bacterial infection [Recovering/Resolving]
  - Gastrooesophageal reflux disease [Recovering/Resolving]
  - Intestinal obstruction [Recovering/Resolving]
  - Vomiting [Recovering/Resolving]
  - Product use in unapproved indication [Recovering/Resolving]
  - Blood pressure increased [Recovering/Resolving]
  - Respiratory disorder [Recovering/Resolving]
  - Bacterial test positive [Recovering/Resolving]
  - Catheter site infection [Recovering/Resolving]
  - Electrolyte imbalance [Recovering/Resolving]
  - Dehydration [Recovering/Resolving]
  - Gastrointestinal disorder [Recovering/Resolving]
  - Infection [Recovering/Resolving]
  - Kidney infection [Recovering/Resolving]
  - Malaise [Recovering/Resolving]
  - Pneumonia [Recovering/Resolving]
